FAERS Safety Report 10436116 (Version 5)
Quarter: 2015Q1

REPORT INFORMATION
  Report Type: Report from Study
  Country: FR (occurrence: FR)
  Receive Date: 20140908
  Receipt Date: 20150130
  Transmission Date: 20150720
  Serious: Yes (Other)
  Sender: FDA-Public Use
  Company Number: FR-JNJFOC-20140501019

PATIENT

DRUGS (3)
  1. XEPLION [Suspect]
     Active Substance: PALIPERIDONE PALMITATE
     Indication: PRODUCT USED FOR UNKNOWN INDICATION
     Dosage: 6 MONTHS AGO
     Route: 030
  2. XEPLION [Suspect]
     Active Substance: PALIPERIDONE PALMITATE
     Indication: PRODUCT USED FOR UNKNOWN INDICATION
     Route: 030
  3. XEPLION [Suspect]
     Active Substance: PALIPERIDONE PALMITATE
     Indication: PRODUCT USED FOR UNKNOWN INDICATION
     Route: 030

REACTIONS (15)
  - Hallucination [Unknown]
  - Depression [Unknown]
  - Dizziness [Recovered/Resolved]
  - Thinking abnormal [Recovering/Resolving]
  - Gastrooesophageal reflux disease [Unknown]
  - Weight increased [Unknown]
  - Catatonia [Recovering/Resolving]
  - Irritability [Unknown]
  - Anxiety [Unknown]
  - Abulia [Recovering/Resolving]
  - Flatulence [Unknown]
  - Insomnia [Unknown]
  - Libido disorder [Recovering/Resolving]
  - Diarrhoea [Recovering/Resolving]
  - Abdominal distension [Recovering/Resolving]
